FAERS Safety Report 4548216-8 (Version None)
Quarter: 2005Q1

REPORT INFORMATION
  Report Type: 
  Country: None (occurrence: None)
  Receive Date: 20050105
  Receipt Date: 20050105
  Transmission Date: 20050727
  Serious: No
  Sender: FDA-Public Use
  Company Number: None

PATIENT
  Age: 69 Year
  Sex: Male
  Weight: 126.7 kg

DRUGS (6)
  1. LOSARTAN [Suspect]
     Indication: DIABETES MELLITUS
     Dosage: 50MG, DAILY , ORAL
     Route: 048
  2. LOSARTAN [Suspect]
     Indication: HYPERTENSION
     Dosage: 50MG, DAILY , ORAL
     Route: 048
  3. FUROSEMIDE [Concomitant]
  4. IRBESARTAN [Concomitant]
  5. METOLAZONE [Concomitant]
  6. POTASSIUM CHLORIDE [Concomitant]

REACTIONS (2)
  - BLOOD CREATININE INCREASED [None]
  - HYPERKALAEMIA [None]
